FAERS Safety Report 4964489-1 (Version None)
Quarter: 2006Q1

REPORT INFORMATION
  Report Type: 
  Country: None (occurrence: None)
  Receive Date: 20060331
  Receipt Date: 20060313
  Transmission Date: 20060701
  Serious: Yes (Hospitalization, Other)
  Sender: FDA-Public Use
  Company Number: US200511001525

PATIENT
  Age: 46 Year
  Sex: Male

DRUGS (1)
  1. ZYPREXA [Suspect]
     Dates: end: 20030601

REACTIONS (14)
  - AGGRESSION [None]
  - AGITATION [None]
  - ANOXIC ENCEPHALOPATHY [None]
  - BLOOD GLUCOSE INCREASED [None]
  - DEEP VEIN THROMBOSIS [None]
  - DEMENTIA [None]
  - DIABETES MELLITUS [None]
  - DIABETIC COMA [None]
  - DYSARTHRIA [None]
  - FALL [None]
  - GASTROOESOPHAGEAL REFLUX DISEASE [None]
  - HYPOGLYCAEMIA [None]
  - LETHARGY [None]
  - PO2 DECREASED [None]
